FAERS Safety Report 9255090 (Version 1)
Quarter: 2013Q2

REPORT INFORMATION
  Report Type: Spontaneous
  Country: CA (occurrence: CA)
  Receive Date: 20130425
  Receipt Date: 20130425
  Transmission Date: 20140414
  Serious: Yes (Hospitalization)
  Sender: FDA-Public Use
  Company Number: CA-ELI_LILLY_AND_COMPANY-CA201304005027

PATIENT
  Age: 62 Year
  Sex: Female

DRUGS (16)
  1. FORTEO [Suspect]
     Indication: OSTEOPOROSIS
     Dosage: 20 UG, QD
     Route: 058
     Dates: start: 20130306
  2. ASA [Concomitant]
  3. SPIRIVA [Concomitant]
  4. ADVAIR [Concomitant]
  5. VENTOLIN                                /SCH/ [Concomitant]
  6. SYNTHROID [Concomitant]
  7. SINGULAR [Concomitant]
  8. RAMIPRIL [Concomitant]
  9. PREVACID [Concomitant]
  10. LIPITOR [Concomitant]
  11. PAXIL [Concomitant]
  12. CLONAZEPAM [Concomitant]
  13. HUMULIN N [Concomitant]
  14. CALCIUM [Concomitant]
  15. VITAMIN D [Concomitant]
  16. ATIVAN [Concomitant]

REACTIONS (1)
  - Pneumonia pseudomonas aeruginosa [Not Recovered/Not Resolved]
